FAERS Safety Report 12194117 (Version 1)
Quarter: 2016Q1

REPORT INFORMATION
  Report Type: Report from Study
  Country: US (occurrence: US)
  Receive Date: 20160321
  Receipt Date: 20160321
  Transmission Date: 20160526
  Serious: Yes (Other)
  Sender: FDA-Public Use
  Company Number: US-AMGEN-USASL2016033232

PATIENT
  Sex: Female

DRUGS (1)
  1. PROLIA [Suspect]
     Active Substance: DENOSUMAB
     Indication: OSTEOPOROSIS
     Dosage: UNK
     Route: 065
     Dates: start: 2012

REACTIONS (10)
  - Spinal disorder [Unknown]
  - Intervertebral disc compression [Unknown]
  - Gait disturbance [Unknown]
  - Spinal fracture [Unknown]
  - Vitamin D deficiency [Recovered/Resolved]
  - Bone density decreased [Unknown]
  - Neuralgia [Unknown]
  - Procedural pain [Unknown]
  - Foot operation [Unknown]
  - Migraine [Unknown]
